FAERS Safety Report 20179925 (Version 1)
Quarter: 2021Q4

REPORT INFORMATION
  Report Type: Spontaneous
  Country: US (occurrence: None)
  Receive Date: 20211213
  Receipt Date: 20211213
  Transmission Date: 20220303
  Serious: Yes (Other)
  Sender: FDA-Public Use
  Company Number: None

PATIENT
  Age: 51 Year
  Sex: Male

DRUGS (2)
  1. BAMLANIVIMAB\ETESEVIMAB [Suspect]
     Active Substance: BAMLANIVIMAB\ETESEVIMAB
     Indication: COVID-19
     Dates: start: 20211129, end: 20211129
  2. Bamlanivimab/etsevimab [Concomitant]
     Dates: start: 20211129, end: 20211129

REACTIONS (3)
  - Infusion related reaction [None]
  - Back pain [None]
  - Pain [None]

NARRATIVE: CASE EVENT DATE: 20211129
